FAERS Safety Report 8786854 (Version 2)
Quarter: 2012Q4

REPORT INFORMATION
  Report Type: 
  Country: BR (occurrence: BR)
  Receive Date: 20120914
  Receipt Date: 20120924
  Transmission Date: 20130627
  Serious: Yes (Other)
  Sender: FDA-Public Use
  Company Number: BR-AMGEN-BRASP2012008076

PATIENT
  Age: 67 Year
  Sex: Female
  Weight: 53 kg

DRUGS (10)
  1. ENBREL [Suspect]
     Indication: RHEUMATOID ARTHRITIS
     Dosage: 50 mg, 1x/week
     Route: 058
     Dates: start: 20091114, end: 201112
  2. ENBREL [Suspect]
     Dosage: 50 mg, qwk
     Route: 058
     Dates: start: 201109, end: 201111
  3. MABTHERA [Suspect]
     Dosage: UNK
  4. PARACETAMOL [Concomitant]
     Dosage: UNK
  5. GLIFAGE [Concomitant]
     Dosage: 500 mg
  6. DIAMICRON [Concomitant]
     Dosage: UNK
  7. LOSARTAN [Concomitant]
     Dosage: UNK
  8. VYTORIN [Concomitant]
     Dosage: UNK
  9. INSULIN [Concomitant]
     Dosage: UNK
  10. PREDNISONE [Concomitant]
     Indication: RHEUMATOID ARTHRITIS
     Dosage: UNK

REACTIONS (4)
  - Immune system disorder [Unknown]
  - Coronary artery insufficiency [Unknown]
  - Drug effect incomplete [Unknown]
  - Drug ineffective [Unknown]
